FAERS Safety Report 6369422-6 (Version None)
Quarter: 2009Q3

REPORT INFORMATION
  Report Type: 
  Country: None (occurrence: None)
  Receive Date: 20090917
  Receipt Date: 20090910
  Transmission Date: 20100115
  Serious: Yes (Hospitalization)
  Sender: FDA-Public Use
  Company Number: 2009AL001943

PATIENT
  Age: 76 Year
  Sex: Male

DRUGS (53)
  1. DIGOXIN [Suspect]
     Dosage: 0.25MG, DAILY, PO  0.125MG DAILY PO
     Route: 048
     Dates: start: 20010420
  2. LOPRESSOR [Concomitant]
  3. LISINOPRIL [Concomitant]
  4. ADVAIR DISKUS 100/50 [Concomitant]
  5. ATROVENT [Concomitant]
  6. LASIX [Concomitant]
  7. METOPROLOL [Concomitant]
  8. ISOSORBIDE [Concomitant]
  9. PRAVASTATIN [Concomitant]
  10. NEXIUM [Concomitant]
  11. SPIRONOLACTONE [Concomitant]
  12. ASPIRIN [Concomitant]
  13. POTASSIUM CHLORIDE [Concomitant]
  14. FLEXERIL [Concomitant]
  15. AMBIEN [Concomitant]
  16. IMDUR [Concomitant]
  17. SPIRIVA [Concomitant]
  18. BAYCOL [Concomitant]
  19. MECLIZINE [Concomitant]
  20. ZITHROMAX [Concomitant]
  21. B COMPLEX ELX [Concomitant]
  22. CLARINEX [Concomitant]
  23. MARCOF EXPECTORANT SYRUP [Concomitant]
  24. CARDIZEM [Concomitant]
  25. CIPRO [Concomitant]
  26. DIPHEN/ATROP [Concomitant]
  27. HYDROCODONE BITARTRATE AND ACETAMINOPHEN [Concomitant]
  28. NAPROXEN [Concomitant]
  29. NITROLINGUAL [Concomitant]
  30. PRILOSEC [Concomitant]
  31. COTRIM [Concomitant]
  32. TROVAN [Concomitant]
  33. VEETIDS [Concomitant]
  34. K-DUR [Concomitant]
  35. ISOTRATE [Concomitant]
  36. KLOR-CON [Concomitant]
  37. TUSSIONEX [Concomitant]
  38. DOXAZOSIN MESYLATE [Concomitant]
  39. PRAVACHOL [Concomitant]
  40. PACERONE [Concomitant]
  41. ALBUTEROL [Concomitant]
  42. AMOXICILLIN [Concomitant]
  43. LUSONEX [Concomitant]
  44. FEXOFENADINE [Concomitant]
  45. AMRIX [Concomitant]
  46. PREDNISONE TAB [Concomitant]
  47. COREG [Concomitant]
  48. KETEK [Concomitant]
  49. ALBUTEROL [Concomitant]
  50. WARFARIN [Concomitant]
  51. IPRATROPIUM [Concomitant]
  52. LORATADINE [Concomitant]
  53. DIOVAN [Concomitant]

REACTIONS (26)
  - ARTHROPATHY [None]
  - ATRIAL FIBRILLATION [None]
  - BLOOD GLUCOSE ABNORMAL [None]
  - BRONCHITIS [None]
  - CARDIAC FAILURE CONGESTIVE [None]
  - CHRONIC OBSTRUCTIVE PULMONARY DISEASE [None]
  - CORONARY ARTERY DISEASE [None]
  - CORONARY ARTERY OCCLUSION [None]
  - CORONARY ARTERY STENOSIS [None]
  - CULTURE POSITIVE [None]
  - DILATATION VENTRICULAR [None]
  - ECONOMIC PROBLEM [None]
  - HEART RATE INCREASED [None]
  - INJURY [None]
  - INTERVERTEBRAL DISC DISORDER [None]
  - LEFT VENTRICULAR END-DIASTOLIC PRESSURE INCREASED [None]
  - LUMBAR SPINAL STENOSIS [None]
  - MYOCARDIAL INFARCTION [None]
  - MYOCARDIAL ISCHAEMIA [None]
  - OSTEOARTHRITIS [None]
  - PERIPHERAL VASCULAR DISORDER [None]
  - RENAL FAILURE ACUTE [None]
  - SCOLIOSIS [None]
  - SPINAL OSTEOARTHRITIS [None]
  - THERAPEUTIC AGENT TOXICITY [None]
  - WHITE BLOOD CELL COUNT INCREASED [None]
